FAERS Safety Report 18648994 (Version 1)
Quarter: 2020Q4

REPORT INFORMATION
  Report Type: Spontaneous
  Country: FR (occurrence: FR)
  Receive Date: 20201222
  Receipt Date: 20201222
  Transmission Date: 20210114
  Serious: Yes (Congenital Anomaly)
  Sender: FDA-Public Use
  Company Number: FR-009507513-2012FRA009373

PATIENT
  Sex: Male
  Weight: 4.49 kg

DRUGS (5)
  1. LEVOTHYROX [Suspect]
     Active Substance: LEVOTHYROXINE
     Indication: HYPOTHYROIDISM
     Dosage: 50 MICROGRAM, QD
     Route: 064
     Dates: start: 20170628, end: 20180327
  2. ZYPREXA [Suspect]
     Active Substance: OLANZAPINE
     Indication: BRIEF PSYCHOTIC DISORDER WITH MARKED STRESSORS
     Dosage: 10 MILLIGRAM, QD
     Route: 064
     Dates: start: 20170628, end: 20180327
  3. SPECIAFOLDINE [Concomitant]
     Active Substance: FOLIC ACID
     Dosage: UNK UNK, QD
     Route: 064
  4. TARDYFERON [Concomitant]
     Active Substance: FERROUS SULFATE
     Dosage: UNK
     Route: 064
  5. AERIUS (DESLORATADINE) [Suspect]
     Active Substance: DESLORATADINE
     Indication: HYPERSENSITIVITY
     Dosage: 1 DOSAGE FORM, QD
     Route: 064
     Dates: start: 20170628, end: 20180327

REACTIONS (1)
  - Syndactyly [Recovered/Resolved with Sequelae]

NARRATIVE: CASE EVENT DATE: 20180327
